FAERS Safety Report 13461526 (Version 2)
Quarter: 2018Q1

REPORT INFORMATION
  Report Type: Spontaneous
  Country: IT (occurrence: IT)
  Receive Date: 20170420
  Receipt Date: 20180222
  Transmission Date: 20180508
  Serious: Yes (Hospitalization)
  Sender: FDA-Public Use
  Company Number: IT-ALKEM LABORATORIES LIMITED-IT-ALKEM-2017-00173

PATIENT
  Age: 3 Year
  Sex: Male

DRUGS (1)
  1. LAMOTRIGINE. [Suspect]
     Active Substance: LAMOTRIGINE
     Indication: PRODUCT USED FOR UNKNOWN INDICATION
     Dosage: UNK
     Route: 065

REACTIONS (13)
  - Malaise [Unknown]
  - Sinus tachycardia [Recovered/Resolved]
  - Dystonia [Unknown]
  - Increased appetite [Unknown]
  - Bundle branch block right [Recovered/Resolved]
  - Ataxia [Recovered/Resolved]
  - Toxicity to various agents [Unknown]
  - Generalised tonic-clonic seizure [Recovered/Resolved]
  - Restlessness [Recovered/Resolved]
  - Thirst [Unknown]
  - Overdose [Unknown]
  - Oculogyric crisis [Unknown]
  - Hyperkinesia [Recovered/Resolved]
